FAERS Safety Report 8770175 (Version 3)
Quarter: 2012Q4

REPORT INFORMATION
  Report Type: 
  Country: JP (occurrence: JP)
  Receive Date: 20120904
  Receipt Date: 20121008
  Transmission Date: 20130627
  Serious: Yes (Death, Life-Threatening, Other)
  Sender: FDA-Public Use
  Company Number: JP-AMGEN-JPNSP2012054624

PATIENT
  Age: 79 Year
  Sex: Female
  Weight: 31 kg

DRUGS (9)
  1. ENBREL [Suspect]
     Indication: RHEUMATOID ARTHRITIS
     Dosage: 25 mg, 2x/week
     Route: 058
     Dates: start: 20090212, end: 20120814
  2. TAKEPRON [Concomitant]
     Indication: PROPHYLAXIS
     Dosage: 15 mg, 2x/day
     Route: 048
  3. AZULFIDINE [Concomitant]
     Indication: RHEUMATOID ARTHRITIS
     Dosage: 500 mg, 2x/day
     Route: 048
  4. PROGRAF [Concomitant]
     Indication: RHEUMATOID ARTHRITIS
     Dosage: 1 mg, 1x/day
     Route: 048
  5. PREDNISOLONE [Concomitant]
     Indication: RHEUMATOID ARTHRITIS
     Dosage: 4 mg, 1x/day
     Route: 048
  6. ADALAT [Concomitant]
     Indication: HYPERTENSION
     Dosage: 20 mg, 1x/day
     Route: 048
  7. SOLANAX [Concomitant]
     Indication: INSOMNIA
     Dosage: 0.4 mg, 1x/day
     Route: 048
  8. MAINTATE [Concomitant]
     Indication: HYPERTENSION
     Dosage: 2.5 mg, 1x/day
     Route: 048
  9. MAGMITT [Concomitant]
     Indication: CONSTIPATION
     Dosage: 660 mg, 2x/day
     Route: 048

REACTIONS (2)
  - Gastroenteritis [Fatal]
  - Respiratory arrest [Unknown]
